FAERS Safety Report 5845982-6 (Version None)
Quarter: 2008Q3

REPORT INFORMATION
  Report Type: 
  Country: None (occurrence: None)
  Receive Date: 20080814
  Receipt Date: 20080804
  Transmission Date: 20090109
  Serious: Yes (Life-Threatening, Hospitalization, Other)
  Sender: FDA-Public Use
  Company Number: CL-PFIZER INC-2008060847

PATIENT
  Sex: Female
  Weight: 62 kg

DRUGS (9)
  1. ZYVOX [Suspect]
     Indication: URINARY TRACT INFECTION
     Route: 042
     Dates: start: 20080701, end: 20080705
  2. ZYVOX [Suspect]
     Indication: URINARY TRACT INFECTION
     Route: 048
     Dates: start: 20080706, end: 20080710
  3. DILTIAZEM HCL [Concomitant]
  4. AMIODARONE [Concomitant]
  5. FUROSEMIDE [Concomitant]
  6. ACETAMINOPHEN [Concomitant]
  7. FLUCONAZOLE [Concomitant]
  8. TRAMADOL HCL [Concomitant]
  9. CIPROFLOXACIN [Concomitant]

REACTIONS (6)
  - ARRHYTHMIA [None]
  - ASTHENIA [None]
  - BRADYCARDIA [None]
  - LACTIC ACIDOSIS [None]
  - NAUSEA [None]
  - VOMITING [None]
